FAERS Safety Report 21754284 (Version 1)
Quarter: 2022Q4

REPORT INFORMATION
  Report Type: Spontaneous
  Country: MY (occurrence: MY)
  Receive Date: 20221220
  Receipt Date: 20221220
  Transmission Date: 20230112
  Serious: Yes (Other)
  Sender: FDA-Public Use
  Company Number: MY-002147023-NVSC2022MY290236

PATIENT
  Age: 55 Year
  Sex: Female

DRUGS (1)
  1. GLIVEC [Suspect]
     Active Substance: IMATINIB MESYLATE
     Indication: Gastrointestinal stromal tumour
     Dosage: 600 MG, QD
     Route: 065

REACTIONS (2)
  - Gastrointestinal stoma complication [Recovering/Resolving]
  - Vomiting [Recovering/Resolving]
